FAERS Safety Report 7519798-9 (Version None)
Quarter: 2011Q2

REPORT INFORMATION
  Report Type: 
  Country: None (occurrence: None)
  Receive Date: 20110602
  Receipt Date: 20101231
  Transmission Date: 20111010
  Serious: No
  Sender: FDA-Public Use
  Company Number: US-MYLANLABS-2011S1000660

PATIENT
  Sex: Female

DRUGS (1)
  1. RIMSO-50 [Suspect]
     Dates: start: 20101018, end: 20101213

REACTIONS (1)
  - DRUG EXPOSURE DURING PREGNANCY [None]
